FAERS Safety Report 9510268 (Version 2)
Quarter: 2013Q3

REPORT INFORMATION
  Report Type: Spontaneous
  Country: US (occurrence: US)
  Receive Date: 20130909
  Receipt Date: 20130909
  Transmission Date: 20140515
  Serious: No
  Sender: FDA-Public Use
  Company Number: US-BRISTOL-MYERS SQUIBB COMPANY-17480864

PATIENT
  Age: 56 Year
  Sex: Male

DRUGS (5)
  1. ABILIFY [Suspect]
     Indication: SCHIZOPHRENIA
     Dosage: DOSE REDUCED TO 5MG?LAST DOSE:03-JAN-2011
     Route: 048
     Dates: start: 20100401, end: 20110103
  2. EFFEXOR XR [Suspect]
     Indication: DEPRESSION
     Dosage: DOSE REDUCED TO 150MG ON 10-DEC-2012
     Route: 048
     Dates: start: 20110605
  3. LITHIUM [Concomitant]
  4. DEPAKOTE [Concomitant]
  5. ARTANE [Concomitant]

REACTIONS (2)
  - Erectile dysfunction [Recovering/Resolving]
  - Libido decreased [Recovering/Resolving]
